FAERS Safety Report 5673652-6 (Version None)
Quarter: 2008Q1

REPORT INFORMATION
  Report Type: 
  Country: None (occurrence: None)
  Receive Date: 20080319
  Receipt Date: 20080310
  Transmission Date: 20080703
  Serious: Yes (Other)
  Sender: FDA-Public Use
  Company Number: FR-GILEAD-2008-0015659

PATIENT
  Sex: Female
  Weight: 46 kg

DRUGS (7)
  1. TRUVADA [Suspect]
     Indication: HIV INFECTION
     Route: 048
     Dates: start: 20070629
  2. KALETRA [Concomitant]
     Indication: HIV INFECTION
     Route: 048
     Dates: start: 20070629
  3. ZIAGEN [Concomitant]
     Indication: HIV INFECTION
     Route: 048
     Dates: start: 20070629
  4. PEGASYS [Concomitant]
     Indication: HEPATITIS B VIRUS
     Dates: start: 20070629, end: 20080307
  5. DAFALGAN [Concomitant]
     Indication: ANALGESIC THERAPY
     Route: 048
     Dates: start: 20070629
  6. DEXERYL [Concomitant]
     Indication: DRY SKIN
     Dates: start: 20070824
  7. PROVIDEXTRA [Concomitant]
     Indication: MEDICAL DIET
     Dates: start: 20070402

REACTIONS (1)
  - HYPERTHYROIDISM [None]
